FAERS Safety Report 10540446 (Version 1)
Quarter: 2014Q4

REPORT INFORMATION
  Report Type: Spontaneous
  Country: US (occurrence: US)
  Receive Date: 20141024
  Receipt Date: 20141024
  Transmission Date: 20150529
  Serious: No
  Sender: FDA-Public Use
  Company Number: US-UPSHER-SMITH LABORATORIES, INC.-14002104

PATIENT
  Age: 91 Year
  Sex: Female

DRUGS (8)
  1. KLOR-CON M [Suspect]
     Active Substance: POTASSIUM CHLORIDE
     Indication: HEART RATE INCREASED
     Dosage: 20 MEQ TID, ALTERNATING WITH 20 MEQ QID
     Route: 048
     Dates: start: 201407
  2. HYDROCHLOROTHIAZIDE. [Concomitant]
     Active Substance: HYDROCHLOROTHIAZIDE
     Indication: DIURETIC THERAPY
     Dosage: UNK
  3. ASPIRIN. [Concomitant]
     Active Substance: ASPIRIN
     Dosage: 81 MG, UNK
  4. LORATADINE. [Concomitant]
     Active Substance: LORATADINE
     Indication: HYPERSENSITIVITY
     Dosage: UNK
  5. MULTIVITAMIN [Concomitant]
     Active Substance: VITAMINS
     Dosage: UNK
  6. LEVOTHYROXINE SODIUM. [Concomitant]
     Active Substance: LEVOTHYROXINE SODIUM
     Indication: PARATHYROIDECTOMY
     Dosage: UNK
  7. NORVASC [Concomitant]
     Active Substance: AMLODIPINE BESYLATE
     Dosage: UNK
  8. KLOR-CON M [Suspect]
     Active Substance: POTASSIUM CHLORIDE
     Indication: BLOOD POTASSIUM DECREASED
     Dosage: 20 MEQ, QID
     Route: 048
     Dates: start: 20140624, end: 201407

REACTIONS (7)
  - Abdominal pain [Not Recovered/Not Resolved]
  - Constipation [Not Recovered/Not Resolved]
  - Asthenia [Not Recovered/Not Resolved]
  - Diarrhoea [Recovered/Resolved]
  - Vision blurred [Not Recovered/Not Resolved]
  - Muscle spasms [Not Recovered/Not Resolved]
  - Flatulence [Not Recovered/Not Resolved]

NARRATIVE: CASE EVENT DATE: 201406
